FAERS Safety Report 25601712 (Version 2)
Quarter: 2025Q3

REPORT INFORMATION
  Report Type: Spontaneous
  Country: US (occurrence: US)
  Receive Date: 20250724
  Receipt Date: 20250729
  Transmission Date: 20251020
  Serious: Yes (Hospitalization, Other)
  Sender: PFIZER
  Company Number: US-PFIZER INC-PV202500087403

PATIENT
  Age: 18 Year
  Sex: Female

DRUGS (1)
  1. VINCRISTINE SULFATE [Suspect]
     Active Substance: VINCRISTINE SULFATE
     Indication: Acute leukaemia
     Dosage: 1.5 MG/M2, WEEKLY (CAPPED AT 2MG/DOSE)
     Route: 042

REACTIONS (1)
  - Autonomic neuropathy [Recovered/Resolved]
